FAERS Safety Report 23722782 (Version 1)
Quarter: 2024Q2

REPORT INFORMATION
  Report Type: Spontaneous
  Country: NO (occurrence: NO)
  Receive Date: 20240409
  Receipt Date: 20240409
  Transmission Date: 20240715
  Serious: Yes (Disabling, Other)
  Sender: FDA-Public Use
  Company Number: NO-STRIDES ARCOLAB LIMITED-2017SP012503

PATIENT

DRUGS (4)
  1. CLINDAMYCIN HYDROCHLORIDE [Suspect]
     Active Substance: CLINDAMYCIN HYDROCHLORIDE
     Dosage: UNK
  2. ZINACEF [Suspect]
     Active Substance: CEFUROXIME SODIUM
     Dosage: UNK
  3. PENICILLIN V POTASSIUM [Suspect]
     Active Substance: PENICILLIN V POTASSIUM
     Dosage: UNK
  4. METRONIDAZOLE [Suspect]
     Active Substance: METRONIDAZOLE
     Dosage: UNK

REACTIONS (11)
  - Ear discomfort [Unknown]
  - Restlessness [Unknown]
  - Hypoacusis [Unknown]
  - Anxiety [Unknown]
  - Insomnia [Unknown]
  - Condition aggravated [Unknown]
  - Memory impairment [Unknown]
  - Disturbance in attention [Unknown]
  - Tinnitus [Unknown]
  - Headache [Unknown]
  - Ear congestion [Unknown]
